FAERS Safety Report 9483625 (Version 2)
Quarter: 2013Q3

REPORT INFORMATION
  Report Type: Spontaneous
  Country: CA (occurrence: CA)
  Receive Date: 20130828
  Receipt Date: 20130828
  Transmission Date: 20140515
  Serious: Yes (Hospitalization, Other)
  Sender: FDA-Public Use
  Company Number: CA-AMGEN-KDL297506

PATIENT
  Age: 68 Year
  Sex: Female
  Weight: 68.1 kg

DRUGS (4)
  1. ENBREL [Suspect]
     Indication: PSORIATIC ARTHROPATHY
     Dosage: UNK UNK, QWK
     Route: 058
     Dates: start: 20080526
  2. ACETAMINOPHEN [Concomitant]
     Dosage: UNK UNK, UNK
  3. MORPHINE [Concomitant]
     Dosage: UNK UNK, UNK
  4. UNSPECIFIED ANTINEOPLASTIC AGENT [Concomitant]

REACTIONS (10)
  - Sepsis [Unknown]
  - Gastric ulcer [Unknown]
  - Renal disorder [Unknown]
  - Depression [Unknown]
  - Memory impairment [Unknown]
  - Abdominal discomfort [Unknown]
  - Insomnia [Unknown]
  - Lethargy [Unknown]
  - Pain [Unknown]
  - Abdominal pain upper [Unknown]
